FAERS Safety Report 20781793 (Version 3)
Quarter: 2022Q3

REPORT INFORMATION
  Report Type: Report from Study
  Country: FR (occurrence: FR)
  Receive Date: 20220504
  Receipt Date: 20220708
  Transmission Date: 20221027
  Serious: Yes (Hospitalization)
  Sender: FDA-Public Use
  Company Number: FR-NOVARTISPH-NVSC2022FR101018

PATIENT
  Age: 75 Year
  Sex: Female
  Weight: 46 kg

DRUGS (6)
  1. ALPELISIB [Suspect]
     Active Substance: ALPELISIB
     Indication: Meningioma malignant
     Dosage: 100 MG, QD (1 TIME PER DAY)
     Route: 048
     Dates: start: 20220316, end: 20220411
  2. TRAMETINIB [Suspect]
     Active Substance: TRAMETINIB
     Indication: Meningioma malignant
     Dosage: 1.5 MG, QD (1 TIME PER DAY)
     Route: 048
     Dates: start: 20220316, end: 20220410
  3. AUGMENTIN [Concomitant]
     Active Substance: AMOXICILLIN\CLAVULANATE POTASSIUM
     Indication: Furuncle
     Dosage: 1G/125MGX3/DAY
     Route: 065
  4. METFORMIN HYDROCHLORIDE [Concomitant]
     Active Substance: METFORMIN HYDROCHLORIDE
     Indication: Hyperglycaemia
     Dosage: 500 MG
     Route: 065
     Dates: start: 20220411
  5. IMODIUM [Concomitant]
     Active Substance: LOPERAMIDE HYDROCHLORIDE
     Indication: Product used for unknown indication
     Dosage: 02 MG
     Route: 065
  6. RAMIPRIL [Concomitant]
     Active Substance: RAMIPRIL
     Indication: Hypertension
     Dosage: 10 MG
     Route: 065
     Dates: start: 20220317, end: 20220426

REACTIONS (3)
  - Fatigue [Recovered/Resolved with Sequelae]
  - Meningioma malignant [Recovered/Resolved with Sequelae]
  - Malignant neoplasm progression [Recovered/Resolved with Sequelae]

NARRATIVE: CASE EVENT DATE: 20220411
